FAERS Safety Report 14687923 (Version 3)
Quarter: 2018Q2

REPORT INFORMATION
  Report Type: Spontaneous
  Country: US (occurrence: US)
  Receive Date: 20180328
  Receipt Date: 20180413
  Transmission Date: 20180711
  Serious: No
  Sender: FDA-Public Use
  Company Number: US-TEVA-2018-US-864343

PATIENT
  Sex: Male

DRUGS (3)
  1. METOPROLOL. [Suspect]
     Active Substance: METOPROLOL
     Dates: start: 201710
  2. ASPIRIN. [Concomitant]
     Active Substance: ASPIRIN
  3. METOPROLOL. [Suspect]
     Active Substance: METOPROLOL
     Indication: BLOOD PRESSURE MEASUREMENT
     Dates: start: 201710

REACTIONS (7)
  - Palpitations [Unknown]
  - Renal function test abnormal [Recovering/Resolving]
  - Drug ineffective [Unknown]
  - Drug effect increased [Unknown]
  - Joint swelling [Unknown]
  - Chest discomfort [Unknown]
  - Abnormal dreams [Unknown]

NARRATIVE: CASE EVENT DATE: 2017
